FAERS Safety Report 17172067 (Version 4)
Quarter: 2022Q3

REPORT INFORMATION
  Report Type: Report from Study
  Country: DE (occurrence: DE)
  Receive Date: 20191218
  Receipt Date: 20220923
  Transmission Date: 20221026
  Serious: Yes (Life-Threatening)
  Sender: FDA-Public Use
  Company Number: DE-AMGEN-DEUNI2019207571

PATIENT
  Age: 64 Year
  Sex: Female
  Weight: 64 kg

DRUGS (33)
  1. PANITUMUMAB [Suspect]
     Active Substance: PANITUMUMAB
     Indication: Colorectal cancer metastatic
     Dosage: 385 MILLIGRAM
     Route: 042
     Dates: start: 20181210
  2. PANITUMUMAB [Suspect]
     Active Substance: PANITUMUMAB
     Dosage: 355 MILLIGRAM
     Route: 042
     Dates: start: 20190114
  3. PANITUMUMAB [Suspect]
     Active Substance: PANITUMUMAB
     Dosage: 360 MILLIGRAM
     Route: 042
     Dates: start: 20190225
  4. PANITUMUMAB [Suspect]
     Active Substance: PANITUMUMAB
     Dosage: 365 MILLIGRAM
     Route: 042
     Dates: start: 20190513
  5. PANITUMUMAB [Suspect]
     Active Substance: PANITUMUMAB
     Dosage: 370 MILLIGRAM
     Route: 042
     Dates: start: 20190527
  6. PANITUMUMAB [Suspect]
     Active Substance: PANITUMUMAB
     Dosage: 380 MILLIGRAM
     Route: 042
     Dates: start: 20190729
  7. LEUCOVORIN [Suspect]
     Active Substance: LEUCOVORIN
     Indication: Colorectal cancer metastatic
     Dosage: 700 MILLIGRAM
     Route: 065
     Dates: start: 20181210
  8. LEUCOVORIN [Suspect]
     Active Substance: LEUCOVORIN
     Dosage: 540 MILLIGRAM
     Route: 065
     Dates: start: 20190114
  9. LEUCOVORIN [Suspect]
     Active Substance: LEUCOVORIN
     Dosage: 355 MILLIGRAM
     Route: 065
     Dates: start: 20190211
  10. LEUCOVORIN [Suspect]
     Active Substance: LEUCOVORIN
     Dosage: 545 MILLIGRAM
     Route: 065
     Dates: start: 20190225
  11. LEUCOVORIN [Suspect]
     Active Substance: LEUCOVORIN
     Dosage: 540 MILLIGRAM
     Route: 065
     Dates: start: 20190401
  12. LEUCOVORIN [Suspect]
     Active Substance: LEUCOVORIN
     Dosage: 550 MILLIGRAM
     Route: 065
     Dates: start: 20190527
  13. LEUCOVORIN [Suspect]
     Active Substance: LEUCOVORIN
     Dosage: 555 MILLIGRAM
     Route: 065
     Dates: start: 20190729
  14. LEUCOVORIN [Suspect]
     Active Substance: LEUCOVORIN
     Dosage: 520 MILLIGRAM
     Route: 065
     Dates: start: 20190910
  15. LEUCOVORIN [Suspect]
     Active Substance: LEUCOVORIN
     Dosage: 555 MILLIGRAM
     Route: 065
     Dates: start: 20191112
  16. LEUCOVORIN [Suspect]
     Active Substance: LEUCOVORIN
     Dosage: 560 MILLIGRAM
     Route: 065
     Dates: start: 20191126
  17. FLUOROURACIL [Suspect]
     Active Substance: FLUOROURACIL
     Indication: Colorectal cancer metastatic
     Dosage: 700 MILLIGRAM
     Route: 040
     Dates: start: 20181210
  18. FLUOROURACIL [Suspect]
     Active Substance: FLUOROURACIL
     Dosage: 4200 MILLIGRAM
     Route: 042
     Dates: start: 20181210
  19. FLUOROURACIL [Suspect]
     Active Substance: FLUOROURACIL
     Dosage: 3245 MILLIGRAM
     Route: 042
     Dates: start: 20190114
  20. FLUOROURACIL [Suspect]
     Active Substance: FLUOROURACIL
     Dosage: 3265 MILLIGRAM
     Route: 042
     Dates: start: 20190225
  21. FLUOROURACIL [Suspect]
     Active Substance: FLUOROURACIL
     Dosage: 3285 MILLIGRAM
     Route: 042
     Dates: start: 20190513
  22. FLUOROURACIL [Suspect]
     Active Substance: FLUOROURACIL
     Dosage: 3300 MILLIGRAM
     Route: 042
     Dates: start: 20190527
  23. FLUOROURACIL [Suspect]
     Active Substance: FLUOROURACIL
     Dosage: 3340 MILLIGRAM
     Route: 042
     Dates: start: 20190729
  24. FLUOROURACIL [Suspect]
     Active Substance: FLUOROURACIL
     Dosage: 3115 MILLIGRAM
     Route: 042
     Dates: start: 20190910
  25. FLUOROURACIL [Suspect]
     Active Substance: FLUOROURACIL
     Dosage: 3380 MILLIGRAM
     Route: 042
     Dates: start: 20191126
  26. IRINOTECAN [Suspect]
     Active Substance: IRINOTECAN
     Indication: Colorectal cancer metastatic
     Dosage: 315 MILLIGRAM
     Route: 065
     Dates: start: 20181210
  27. IRINOTECAN [Suspect]
     Active Substance: IRINOTECAN
     Dosage: 245 MILLIGRAM
     Route: 065
     Dates: start: 20190114
  28. IRINOTECAN [Suspect]
     Active Substance: IRINOTECAN
     Dosage: 230 MILLIGRAM
     Route: 065
     Dates: start: 20190910
  29. IRINOTECAN [Suspect]
     Active Substance: IRINOTECAN
     Dosage: 250 MILLIGRAM
     Route: 065
     Dates: start: 20191112
  30. IRINOTECAN [Suspect]
     Active Substance: IRINOTECAN
     Dosage: 255 MILLIGRAM
     Route: 065
     Dates: start: 20191126
  31. TETRACYCLIN WOLFF [Concomitant]
     Dosage: 250 MILLIGRAM, QD
     Route: 048
     Dates: start: 20181207
  32. MCP-RATIOPHARM [Concomitant]
     Active Substance: METOCLOPRAMIDE HYDROCHLORIDE
     Indication: Vomiting
     Dosage: UNK MILLILITER, AS NECESSARY (10 MG/2 ML)
     Route: 048
     Dates: start: 20181212
  33. METRONIDAZOL-RATIOPHARM [Concomitant]
     Indication: Rash
     Dosage: UNK UNK, AS NECESSARY
     Route: 062
     Dates: start: 20190125

REACTIONS (2)
  - Dermatitis acneiform [Recovered/Resolved]
  - Dermatitis acneiform [Recovered/Resolved]

NARRATIVE: CASE EVENT DATE: 20190909
